FAERS Safety Report 23321624 (Version 1)
Quarter: 2023Q4

REPORT INFORMATION
  Report Type: Report from Study
  Country: US (occurrence: US)
  Receive Date: 20231220
  Receipt Date: 20231220
  Transmission Date: 20240109
  Serious: Yes (Other)
  Sender: FDA-Public Use
  Company Number: US-ABBVIE-5547544

PATIENT
  Sex: Female

DRUGS (1)
  1. HUMIRA [Suspect]
     Active Substance: ADALIMUMAB
     Indication: Crohn^s disease
     Route: 058

REACTIONS (12)
  - Hysterectomy [Unknown]
  - Vitiligo [Unknown]
  - Skin fissures [Unknown]
  - Arthritis [Unknown]
  - Dry skin [Unknown]
  - Post-traumatic stress disorder [Unknown]
  - Lichen sclerosus [Unknown]
  - Skin haemorrhage [Unknown]
  - Melanocytic naevus [Unknown]
  - Acrochordon [Unknown]
  - Premature menopause [Unknown]
  - Product packaging issue [Unknown]
